FAERS Safety Report 10013543 (Version 9)
Quarter: 2014Q2

REPORT INFORMATION
  Report Type: Report from Study
  Country: PA (occurrence: PA)
  Receive Date: 20140315
  Receipt Date: 20140623
  Transmission Date: 20141212
  Serious: Yes (Hospitalization)
  Sender: FDA-Public Use
  Company Number: PA-ROCHE-1362432

PATIENT
  Age: 44 Year
  Sex: Female
  Weight: 56 kg

DRUGS (10)
  1. OBINUTUZUMAB [Suspect]
     Indication: DIFFUSE LARGE B-CELL LYMPHOMA
     Dosage: MOST RECENT DOSE 250 ML(DOSE CONCENTRATION :4 MG/ML) PRIOR TO THE EVENT ON 06/MAR/2014?MOST RECENT D
     Route: 042
     Dates: start: 20140227
  2. CYCLOPHOSPHAMIDE [Suspect]
     Indication: DIFFUSE LARGE B-CELL LYMPHOMA
     Dosage: DATE OF MOST RECENT DOSE PRIOR TO NEUTROPENIA FEBRILE: 11/APR/2014. (1230 MG)?MOST RECENT DOSE PRIOR
     Route: 042
     Dates: start: 20140227
  3. DOXORUBICIN [Suspect]
     Indication: DIFFUSE LARGE B-CELL LYMPHOMA
     Dosage: MOST RECENT DOSE (82 MG)PRIOR TO THE EVENT ON 27/FEB/2014.?DATE OF MOST RECENT DOSE PRIOR TO NEUTROP
     Route: 042
     Dates: start: 20140227
  4. VINCRISTINE [Suspect]
     Indication: DIFFUSE LARGE B-CELL LYMPHOMA
     Dosage: MOST RECENT DOSE( 2 MG) PRIOR TO THE EVENT ON 27/FEB/2014.?DATE OF MOST RECENT DOSE PRIOR TO NEUTROP
     Route: 050
     Dates: start: 20140227
  5. PREDNISONE [Suspect]
     Indication: DIFFUSE LARGE B-CELL LYMPHOMA
     Dosage: MOST RECENT DOSE (100 MG) PRIOR TO THE EVENT ON 6/MAR/2014?DATE OF MOST RECENT DOSE PRIOR TO NEUTROP
     Route: 065
     Dates: start: 20140227
  6. PARACETAMOL [Concomitant]
     Indication: PREMEDICATION
     Route: 065
     Dates: start: 20140227
  7. ONICIT [Concomitant]
     Indication: PREMEDICATION
     Route: 065
     Dates: start: 20140227
  8. HEPARIN [Concomitant]
     Indication: DEEP VEIN THROMBOSIS
     Route: 065
     Dates: start: 20140217
  9. ALLOPURINOL [Concomitant]
     Indication: PROPHYLAXIS
     Route: 065
     Dates: start: 20140226
  10. MYCOSTATIN [Concomitant]
     Indication: MUCOSAL INFLAMMATION
     Route: 065
     Dates: start: 20140308

REACTIONS (3)
  - Febrile neutropenia [Recovered/Resolved]
  - Febrile neutropenia [Recovered/Resolved]
  - Febrile neutropenia [Recovered/Resolved]
